FAERS Safety Report 16326527 (Version 3)
Quarter: 2019Q3

REPORT INFORMATION
  Report Type: Spontaneous
  Country: CA (occurrence: CA)
  Receive Date: 20190517
  Receipt Date: 20190702
  Transmission Date: 20191004
  Serious: Yes (Hospitalization, Other)
  Sender: FDA-Public Use
  Company Number: CA-SAOL THERAPEUTICS-2019SAO00171

PATIENT
  Age: 61 Year
  Sex: Female
  Weight: 63 kg

DRUGS (1)
  1. WINRHO SDF [Suspect]
     Active Substance: HUMAN RHO(D) IMMUNE GLOBULIN
     Indication: IMMUNE THROMBOCYTOPENIC PURPURA
     Dosage: 300 ?G, ONCE
     Route: 042
     Dates: start: 20190501, end: 20190501

REACTIONS (7)
  - Hepatic encephalopathy [Unknown]
  - Melaena [Recovered/Resolved]
  - Acute haemolytic transfusion reaction [Recovering/Resolving]
  - Pain in extremity [Unknown]
  - Depressed level of consciousness [Not Recovered/Not Resolved]
  - Haematuria [Recovered/Resolved]
  - Cytomegalovirus infection [Not Recovered/Not Resolved]

NARRATIVE: CASE EVENT DATE: 201905
